FAERS Safety Report 14373425 (Version 2)
Quarter: 2018Q1

REPORT INFORMATION
  Report Type: Spontaneous
  Country: US (occurrence: US)
  Receive Date: 20180110
  Receipt Date: 20180123
  Transmission Date: 20180509
  Serious: Yes (Life-Threatening, Other)
  Sender: FDA-Public Use
  Company Number: US-009507513-1801USA001774

PATIENT
  Age: 70 Year
  Sex: Female

DRUGS (1)
  1. KEYTRUDA [Suspect]
     Active Substance: PEMBROLIZUMAB
     Indication: LUNG NEOPLASM MALIGNANT
     Dosage: UNK
     Route: 042
     Dates: start: 201707

REACTIONS (4)
  - Decreased appetite [Recovering/Resolving]
  - Pruritus [Recovering/Resolving]
  - Type 1 diabetes mellitus [Recovering/Resolving]
  - Mucosal inflammation [Recovering/Resolving]
